FAERS Safety Report 9269897 (Version 1)
Quarter: 2013Q2

REPORT INFORMATION
  Report Type: Spontaneous
  Country: PL (occurrence: PL)
  Receive Date: 20130503
  Receipt Date: 20130503
  Transmission Date: 20140414
  Serious: Yes (Hospitalization)
  Sender: FDA-Public Use
  Company Number: PL-SANOFI-AVENTIS-2013SA043437

PATIENT
  Age: 59 Year
  Sex: Male
  Weight: 81.5 kg

DRUGS (4)
  1. OXALIPLATIN [Suspect]
     Indication: RECTAL CANCER
     Route: 042
     Dates: start: 20130321, end: 20130321
  2. CLEMASTINE [Concomitant]
     Indication: PREMEDICATION
  3. DEXAVEN [Concomitant]
     Indication: PREMEDICATION
  4. CALCIUM [Concomitant]
     Indication: PREMEDICATION

REACTIONS (2)
  - Ischaemia [Unknown]
  - Back pain [Unknown]
